FAERS Safety Report 11787709 (Version 2)
Quarter: 2015Q4

REPORT INFORMATION
  Report Type: Report from Study
  Country: US (occurrence: US)
  Receive Date: 20151130
  Receipt Date: 20151214
  Transmission Date: 20160305
  Serious: Yes (Hospitalization, Other)
  Sender: FDA-Public Use
  Company Number: PHHY2015US154841

PATIENT
  Sex: Male

DRUGS (2)
  1. METOPROLOL [Suspect]
     Active Substance: METOPROLOL
     Indication: PRODUCT USED FOR UNKNOWN INDICATION
     Dosage: UNK
     Route: 065
  2. METOPROLOL [Suspect]
     Active Substance: METOPROLOL
     Dosage: 50 MG, BID, (ONCE IN MORNING AND AT NIGHT)
     Route: 048

REACTIONS (5)
  - Product physical issue [Unknown]
  - Procedural haemorrhage [Recovering/Resolving]
  - Haemoglobin decreased [Recovering/Resolving]
  - Nephrolithiasis [Recovered/Resolved]
  - pH urine decreased [Unknown]

NARRATIVE: CASE EVENT DATE: 2015
